FAERS Safety Report 12390845 (Version 1)
Quarter: 2016Q2

REPORT INFORMATION
  Report Type: Spontaneous
  Country: RU (occurrence: RU)
  Receive Date: 20160520
  Receipt Date: 20160520
  Transmission Date: 20160815
  Serious: Yes (Other)
  Sender: FDA-Public Use
  Company Number: RU-GLAXOSMITHKLINE-RU2016GSK070744

PATIENT
  Sex: Male

DRUGS (2)
  1. CHLORPROTHIXEN [Concomitant]
     Active Substance: CHLORPROTHIXENE HYDROCHLORIDE
     Indication: NEUROSIS
     Dosage: UNK
     Dates: start: 2015
  2. ACICLOVIR [Suspect]
     Active Substance: ACYCLOVIR
     Indication: RASH
     Dosage: UNK
     Dates: start: 201604, end: 201604

REACTIONS (3)
  - Jaundice [Unknown]
  - Staphylococcal infection [Unknown]
  - Drug ineffective [Unknown]
